FAERS Safety Report 6315487-7 (Version None)
Quarter: 2009Q3

REPORT INFORMATION
  Report Type: 
  Country: None (occurrence: None)
  Receive Date: 20090819
  Receipt Date: 20090817
  Transmission Date: 20100115
  Serious: No
  Sender: FDA-Public Use
  Company Number: US-B.I. PHARMACEUTICALS,INC./RIDGEFIELD-2009-BP-09674BP

PATIENT
  Sex: Male

DRUGS (8)
  1. FLOMAX [Suspect]
     Indication: URINARY RETENTION
     Dosage: 0.8 MG
     Route: 048
     Dates: start: 20090813, end: 20090814
  2. FLOMAX [Suspect]
     Dosage: 0.4 MG
     Route: 048
     Dates: start: 20090723, end: 20090812
  3. METFORMIN [Concomitant]
     Indication: TYPE 2 DIABETES MELLITUS
  4. LISINOPRIL [Concomitant]
     Indication: HYPERTENSION
  5. ASPIRIN [Concomitant]
     Indication: HYPERTENSION
  6. METOPROLOL [Concomitant]
     Indication: HYPERTENSION
  7. SIMVASTATIN [Concomitant]
     Indication: BLOOD CHOLESTEROL INCREASED
  8. FINASTERIDE [Concomitant]
     Indication: URINARY RETENTION

REACTIONS (2)
  - BLOOD URINE PRESENT [None]
  - DRUG INEFFECTIVE [None]
